APPROVED DRUG PRODUCT: DOXYCYCLINE HYCLATE
Active Ingredient: DOXYCYCLINE HYCLATE
Strength: EQ 50MG BASE
Dosage Form/Route: CAPSULE;ORAL
Application: A062631 | Product #001
Applicant: PRIVATE FORMULATIONS INC
Approved: Jul 24, 1986 | RLD: No | RS: No | Type: DISCN